FAERS Safety Report 24400380 (Version 1)
Quarter: 2024Q4

REPORT INFORMATION
  Report Type: Spontaneous
  Country: US (occurrence: US)
  Receive Date: 20241005
  Receipt Date: 20241005
  Transmission Date: 20250114
  Serious: No
  Sender: SANOFI AVENTIS
  Company Number: US-SA-2024SA285550

PATIENT
  Age: 71 Year

DRUGS (1)
  1. ELITEK [Suspect]
     Active Substance: RASBURICASE
     Indication: Extranodal marginal zone B-cell lymphoma (MALT type)
     Dosage: 3 MG, Q3W
     Route: 042

REACTIONS (1)
  - Off label use [Unknown]
